FAERS Safety Report 12204629 (Version 1)
Quarter: 2016Q1

REPORT INFORMATION
  Report Type: Spontaneous
  Country: RO (occurrence: RO)
  Receive Date: 20160323
  Receipt Date: 20160323
  Transmission Date: 20160526
  Serious: Yes (Disabling, Other)
  Sender: FDA-Public Use
  Company Number: RO-JNJFOC-20160319264

PATIENT
  Age: 68 Year
  Sex: Male

DRUGS (8)
  1. XARELTO [Suspect]
     Active Substance: RIVAROXABAN
     Indication: EMBOLISM VENOUS
     Route: 048
     Dates: start: 201601, end: 201603
  2. GLIBOMET [Concomitant]
     Active Substance: GLYBURIDE\METFORMIN HYDROCHLORIDE
     Route: 065
  3. AMARYL [Concomitant]
     Active Substance: GLIMEPIRIDE
     Route: 065
  4. VESSEL DUE [Concomitant]
     Indication: PERIPHERAL EMBOLISM
     Route: 048
     Dates: start: 201601, end: 201603
  5. PRESTARIUM [Concomitant]
     Active Substance: PERINDOPRIL
     Route: 048
  6. PLAVIX [Concomitant]
     Active Substance: CLOPIDOGREL BISULFATE
     Indication: PERIPHERAL EMBOLISM
     Route: 048
     Dates: start: 201601, end: 201603
  7. XARELTO [Suspect]
     Active Substance: RIVAROXABAN
     Indication: PERIPHERAL EMBOLISM
     Route: 048
     Dates: start: 201601, end: 201603
  8. CONCOR [Concomitant]
     Active Substance: BISOPROLOL FUMARATE
     Route: 048

REACTIONS (2)
  - Cerebrovascular accident [Recovered/Resolved with Sequelae]
  - Blindness unilateral [Not Recovered/Not Resolved]

NARRATIVE: CASE EVENT DATE: 20160206
